FAERS Safety Report 7406680-0 (Version None)
Quarter: 2011Q2

REPORT INFORMATION
  Report Type: 
  Country: None (occurrence: None)
  Receive Date: 20110411
  Receipt Date: 20110405
  Transmission Date: 20111010
  Serious: Yes (Death)
  Sender: FDA-Public Use
  Company Number: AU-PFIZER INC-2011075485

PATIENT
  Age: 80 Year
  Sex: Female

DRUGS (5)
  1. REVATIO [Suspect]
     Dosage: 20 MG, 3X/DAY
  2. SPIRONOLACTONE [Concomitant]
     Dosage: UNK
  3. DIGOXIN [Concomitant]
     Dosage: UNK
  4. AMBRISENTAN [Concomitant]
     Dosage: 10 MG, UNK
  5. FRUSEMIDE [Concomitant]
     Dosage: UNK

REACTIONS (1)
  - DISEASE PROGRESSION [None]
